FAERS Safety Report 6220481-0 (Version None)
Quarter: 2009Q2

REPORT INFORMATION
  Report Type: 
  Country: None (occurrence: None)
  Receive Date: 20090610
  Receipt Date: 20090601
  Transmission Date: 20091009
  Serious: Yes (Other)
  Sender: FDA-Public Use
  Company Number: BR-JNJFOC-20090601675

PATIENT
  Age: 7 Year
  Sex: Male

DRUGS (3)
  1. RISPERIDONE [Suspect]
     Route: 065
  2. RISPERIDONE [Suspect]
     Indication: DRUG USE FOR UNKNOWN INDICATION
     Route: 065
  3. VALPROIC ACID [Suspect]
     Indication: DRUG USE FOR UNKNOWN INDICATION
     Route: 065

REACTIONS (9)
  - HEPATIC ENZYME INCREASED [None]
  - HYPERCHOLESTEROLAEMIA [None]
  - HYPERGLYCAEMIA [None]
  - HYPOTHYROIDISM [None]
  - INAPPROPRIATE SCHEDULE OF DRUG ADMINISTRATION [None]
  - NEUROLOGICAL EXAMINATION ABNORMAL [None]
  - OBESITY [None]
  - SEDATION [None]
  - WEIGHT INCREASED [None]
